FAERS Safety Report 23610242 (Version 2)
Quarter: 2024Q1

REPORT INFORMATION
  Report Type: Spontaneous
  Country: ZA (occurrence: ZA)
  Receive Date: 20240308
  Receipt Date: 20240316
  Transmission Date: 20240410
  Serious: Yes (Other)
  Sender: FDA-Public Use
  Company Number: ZA-BAYER-2024A032645

PATIENT

DRUGS (1)
  1. EYLEA [Suspect]
     Active Substance: AFLIBERCEPT
     Indication: Product used for unknown indication
     Dosage: BETWEEN 4-6 WEEKS, SOLUTION FOR INJECTION, 40 MG/ML

REACTIONS (3)
  - Retinal oedema [Unknown]
  - Suspected product quality issue [Unknown]
  - Drug ineffective [Not Recovered/Not Resolved]
